FAERS Safety Report 9642400 (Version 2)
Quarter: 2013Q4

REPORT INFORMATION
  Report Type: Spontaneous
  Country: US (occurrence: US)
  Receive Date: 20131024
  Receipt Date: 20131024
  Transmission Date: 20140711
  Serious: No
  Sender: FDA-Public Use
  Company Number: 2013SP004596

PATIENT
  Age: 68 Year
  Sex: Female
  Weight: 59.88 kg

DRUGS (5)
  1. VANCOMYCIN [Suspect]
     Indication: DIARRHOEA
     Route: 048
     Dates: start: 20130512, end: 20130526
  2. VANCOMYCIN [Suspect]
     Indication: DIARRHOEA
     Route: 048
     Dates: start: 20130610, end: 20130619
  3. VICTOZA [Concomitant]
     Indication: DIABETES MELLITUS
     Dates: start: 201207
  4. CENTRUM SILVER /07431401/ [Concomitant]
     Indication: PROPHYLAXIS
     Route: 048
     Dates: start: 201107
  5. AMBIEN [Concomitant]
     Indication: INSOMNIA
     Route: 048
     Dates: start: 201107

REACTIONS (1)
  - Drug ineffective [Unknown]
